FAERS Safety Report 7500417-2 (Version None)
Quarter: 2011Q2

REPORT INFORMATION
  Report Type: 
  Country: None (occurrence: None)
  Receive Date: 20110524
  Receipt Date: 20110303
  Transmission Date: 20111010
  Serious: No
  Sender: FDA-Public Use
  Company Number: US-BRISTOL-MYERS SQUIBB COMPANY-15587652

PATIENT
  Age: 72 Year
  Sex: Male

DRUGS (1)
  1. ONGLYZA [Suspect]
     Dates: start: 20110201

REACTIONS (1)
  - HEADACHE [None]
